FAERS Safety Report 6228541-5 (Version None)
Quarter: 2009Q2

REPORT INFORMATION
  Report Type: 
  Country: None (occurrence: None)
  Receive Date: 20090612
  Receipt Date: 20090604
  Transmission Date: 20091009
  Serious: Yes (Hospitalization, Other)
  Sender: FDA-Public Use
  Company Number: PHHY2008MX26703

PATIENT
  Age: 28 Year
  Sex: Female

DRUGS (2)
  1. TRILEPTAL [Suspect]
     Indication: EPILEPSY
     Dosage: 1.5 DF/DAY
     Route: 048
     Dates: start: 20030101, end: 20080901
  2. TRILEPTAL [Suspect]
     Dosage: 4 TABLETS PER DAY
     Route: 048
     Dates: start: 20081015

REACTIONS (6)
  - CONVULSION [None]
  - DYSPHAGIA [None]
  - MOBILITY DECREASED [None]
  - MULTIPLE FRACTURES [None]
  - ROAD TRAFFIC ACCIDENT [None]
  - TENDON RUPTURE [None]
